FAERS Safety Report 5641974-0 (Version None)
Quarter: 2008Q1

REPORT INFORMATION
  Report Type: 
  Country: None (occurrence: None)
  Receive Date: 20080227
  Receipt Date: 20080220
  Transmission Date: 20080703
  Serious: Yes (Other)
  Sender: FDA-Public Use
  Company Number: US-PFIZER INC-2008016262

PATIENT
  Sex: Male
  Weight: 81.6 kg

DRUGS (4)
  1. LIPITOR [Suspect]
     Indication: VASCULAR GRAFT
  2. LIPITOR [Suspect]
  3. LIPITOR [Suspect]
     Dosage: FREQ:SPLITTING 40 MG PILLS
  4. HYDROCORTISONE [Concomitant]

REACTIONS (2)
  - CATHETERISATION CARDIAC [None]
  - PAIN [None]
